FAERS Safety Report 13777017 (Version 1)
Quarter: 2017Q3

REPORT INFORMATION
  Report Type: Spontaneous
  Country: US (occurrence: US)
  Receive Date: 20170721
  Receipt Date: 20170721
  Transmission Date: 20171127
  Serious: No
  Sender: FDA-Public Use
  Company Number: None

PATIENT
  Age: 65 Year
  Sex: Female
  Weight: 60.75 kg

DRUGS (7)
  1. GINGER. [Concomitant]
     Active Substance: GINGER
  2. ONDANSETRON 4MG [Suspect]
     Active Substance: ONDANSETRON
     Indication: NAUSEA
     Dosage: ?          OTHER STRENGTH:MG;QUANTITY:10 TABLET(S);?
     Route: 048
     Dates: start: 20170720, end: 20170720
  3. TURMERIC [Concomitant]
     Active Substance: HERBALS\TURMERIC
  4. IBUPROFEN. [Concomitant]
     Active Substance: IBUPROFEN
  5. BUSPERONE [Concomitant]
  6. TRAZODONE [Concomitant]
     Active Substance: TRAZODONE HYDROCHLORIDE
  7. MULTI VITAMINS [Concomitant]
     Active Substance: VITAMINS

REACTIONS (4)
  - Palpitations [None]
  - Syncope [None]
  - Dyspnoea [None]
  - Chest discomfort [None]

NARRATIVE: CASE EVENT DATE: 20170720
